FAERS Safety Report 17047500 (Version 4)
Quarter: 2020Q4

REPORT INFORMATION
  Report Type: Spontaneous
  Country: US (occurrence: US)
  Receive Date: 20191119
  Receipt Date: 20201203
  Transmission Date: 20210113
  Serious: Yes (Hospitalization, Other)
  Sender: FDA-Public Use
  Company Number: US-PFIZER INC-2019494369

PATIENT
  Age: 67 Year
  Sex: Female
  Weight: 106.58 kg

DRUGS (7)
  1. CELEBREX [Suspect]
     Active Substance: CELECOXIB
     Indication: ARTHRITIS
     Dosage: 200 MG, 1X/DAY
     Dates: start: 2005
  2. CELEBREX [Suspect]
     Active Substance: CELECOXIB
     Indication: OSTEOARTHRITIS
     Dosage: UNK, 2X/DAY
  3. CELEBREX [Suspect]
     Active Substance: CELECOXIB
     Dosage: 200 MG, 2X/DAY (MORNING AND ONE AT DINNER)
  4. CELEBREX [Suspect]
     Active Substance: CELECOXIB
     Dosage: UNK, 3X/DAY
  5. DETROL LA [Suspect]
     Active Substance: TOLTERODINE TARTRATE
     Dosage: 51 MG, 2X/DAY
     Dates: start: 2012
  6. DETROL LA [Suspect]
     Active Substance: TOLTERODINE TARTRATE
     Dosage: 2 MG, 2X/DAY (MORNING AND BEDTIME)
  7. DETROL LA [Suspect]
     Active Substance: TOLTERODINE TARTRATE
     Indication: URINARY INCONTINENCE
     Dosage: 49 MG, 2X/DAY
     Dates: start: 2012

REACTIONS (11)
  - Joint abscess [Recovered/Resolved]
  - Cellulitis [Recovered/Resolved]
  - Osteoarthritis [Unknown]
  - Weight increased [Unknown]
  - Nodule [Unknown]
  - Stress [Unknown]
  - Intentional product misuse [Unknown]
  - Dyslexia [Unknown]
  - Overdose [Unknown]
  - Arthritis [Unknown]
  - Pain [Unknown]

NARRATIVE: CASE EVENT DATE: 2012
